FAERS Safety Report 8899389 (Version 2)
Quarter: 2013Q3

REPORT INFORMATION
  Report Type: Spontaneous
  Country: US (occurrence: US)
  Receive Date: 20121108
  Receipt Date: 20130930
  Transmission Date: 20140515
  Serious: No
  Sender: FDA-Public Use
  Company Number: US-AMGEN-USASP2012032706

PATIENT
  Age: 45 Year
  Sex: Male
  Weight: 73.02 kg

DRUGS (3)
  1. ENBREL [Suspect]
     Indication: PSORIATIC ARTHROPATHY
     Dosage: 50 MG, ONCE A WEEK
     Route: 058
     Dates: end: 201209
  2. IBUPROFEN [Concomitant]
     Dosage: 200 MG, UNK
  3. HUMIRA [Concomitant]
     Dosage: UNK
     Dates: start: 201212

REACTIONS (4)
  - Fatigue [Unknown]
  - Arthralgia [Unknown]
  - Therapeutic response decreased [Recovered/Resolved]
  - Psoriatic arthropathy [Unknown]
